FAERS Safety Report 23065179 (Version 1)
Quarter: 2023Q4

REPORT INFORMATION
  Report Type: Spontaneous
  Country: US (occurrence: US)
  Receive Date: 20231013
  Receipt Date: 20231013
  Transmission Date: 20240109
  Serious: No
  Sender: FDA-Public Use
  Company Number: US-JUBILANT PHARMA LTD-2023US001071

PATIENT
  Sex: Female

DRUGS (2)
  1. DRAX EXAMETAZIME [Suspect]
     Active Substance: TECHNETIUM TC-99M EXAMETAZIME
     Indication: White blood cell scan
     Dosage: 22.5 MCI (IN 1.3ML), SINGLE DOSE
     Dates: start: 20230829, end: 20230829
  2. UNSPECIFIED INGREDIENT [Concomitant]
     Active Substance: UNSPECIFIED INGREDIENT
     Indication: Product used for unknown indication
     Dosage: UNK

REACTIONS (1)
  - Chest pain [Recovered/Resolved]

NARRATIVE: CASE EVENT DATE: 20230829
